FAERS Safety Report 21841711 (Version 1)
Quarter: 2023Q1

REPORT INFORMATION
  Report Type: Spontaneous
  Country: FR (occurrence: FR)
  Receive Date: 20230110
  Receipt Date: 20230110
  Transmission Date: 20230417
  Serious: Yes (Life-Threatening, Other)
  Sender: FDA-Public Use
  Company Number: FR-SA-SAC20221223001020

PATIENT
  Age: 64 Year
  Sex: Female
  Weight: 60 kg

DRUGS (7)
  1. PRAZEPAM [Suspect]
     Active Substance: PRAZEPAM
     Indication: Toxicity to various agents
     Dosage: 60 MILLIGRAM,1X
     Route: 048
     Dates: start: 20221201, end: 20221201
  2. ALPRAZOLAM [Suspect]
     Active Substance: ALPRAZOLAM
     Indication: Toxicity to various agents
     Dosage: 6.25 MG, 1X
     Route: 048
     Dates: start: 20221201, end: 20221201
  3. PAROXETINE [Suspect]
     Active Substance: PAROXETINE
     Indication: Toxicity to various agents
     Dosage: 180 MILLIGRAM, 1 X
     Route: 048
     Dates: start: 20221201, end: 20221201
  4. ZOPICLONE [Suspect]
     Active Substance: ZOPICLONE
     Indication: Toxicity to various agents
     Dosage: 120 MILLIGRAM, 1 X
     Route: 048
     Dates: start: 20221201, end: 20221201
  5. DULOXETINE HYDROCHLORIDE [Suspect]
     Active Substance: DULOXETINE HYDROCHLORIDE
     Indication: Product used for unknown indication
     Dosage: 120 MILLIGRAM,, 1X
     Route: 048
     Dates: start: 20221201, end: 20221201
  6. TERALITHE [Suspect]
     Active Substance: LITHIUM CARBONATE
     Indication: Toxicity to various agents
     Dosage: 1200 MILLIGRAM,1X
     Route: 048
     Dates: start: 20221201, end: 20221201
  7. ESKETAMINE [Concomitant]
     Active Substance: ESKETAMINE
     Indication: Depression
     Dosage: UNK
     Route: 065

REACTIONS (5)
  - Coma [Recovering/Resolving]
  - Hypothermia [Recovering/Resolving]
  - Electrocardiogram repolarisation abnormality [Recovering/Resolving]
  - Hypotension [Recovering/Resolving]
  - Troponin increased [Recovering/Resolving]

NARRATIVE: CASE EVENT DATE: 20221201
